FAERS Safety Report 13772641 (Version 2)
Quarter: 2017Q4

REPORT INFORMATION
  Report Type: Report from Study
  Country: US (occurrence: US)
  Receive Date: 20170720
  Receipt Date: 20171102
  Transmission Date: 20180320
  Serious: Yes (Hospitalization, Other)
  Sender: FDA-Public Use
  Company Number: US-TEVA-788089USA

PATIENT
  Age: 19 Year
  Sex: Male
  Weight: 132.4 kg

DRUGS (16)
  1. DIPHENHYDRAMINE. [Concomitant]
     Active Substance: DIPHENHYDRAMINE
  2. ENOXAPARIN SODIUM. [Concomitant]
     Active Substance: ENOXAPARIN SODIUM
  3. NYSTATIN. [Concomitant]
     Active Substance: NYSTATIN
  4. INCB018424 [Suspect]
     Active Substance: RUXOLITINIB
     Indication: ACUTE LYMPHOCYTIC LEUKAEMIA
     Dosage: 160 MILLIGRAM DAILY; REGIMEN #1; 14 DAYS ON, 14 DAYS OFF
     Route: 048
     Dates: start: 20161111
  5. GABAPENTIN. [Concomitant]
     Active Substance: GABAPENTIN
     Dates: start: 20161105, end: 20170509
  6. DEXAMETHASONE. [Suspect]
     Active Substance: DEXAMETHASONE
     Indication: ACUTE LYMPHOCYTIC LEUKAEMIA
     Dosage: REGIMEN #1; DAYS 1-14; DAYS 15-21
     Route: 048
     Dates: start: 20170417
  7. GRANISETRON HYDROCHLORIDE. [Concomitant]
     Active Substance: GRANISETRON HYDROCHLORIDE
  8. MEDIHONEY [Concomitant]
     Active Substance: HONEY
     Dates: start: 20170310
  9. VINCRISTINE [Suspect]
     Active Substance: VINCRISTINE
     Indication: ACUTE LYMPHOCYTIC LEUKAEMIA
     Dosage: REGIMEN #1; DAYS 1 ,8, 15
     Route: 042
     Dates: start: 20161125
  10. ASPARAGINASE [Suspect]
     Active Substance: ASPARAGINASE
     Indication: ACUTE LYMPHOCYTIC LEUKAEMIA
     Dosage: REGIMEN #1; 60000 U, D43-52
     Route: 030
     Dates: start: 20161126
  11. CYTARABINE. [Suspect]
     Active Substance: CYTARABINE
     Indication: ACUTE LYMPHOCYTIC LEUKAEMIA
     Dosage: REGIMEN #1; 029-32; 036-39
     Route: 042
     Dates: start: 20161111
  12. THIOGUANINE [Suspect]
     Active Substance: THIOGUANINE
     Indication: ACUTE LYMPHOCYTIC LEUKAEMIA
     Dosage: 600 MILLIGRAM DAILY; REGIMEN #1
     Route: 048
     Dates: start: 20170522
  13. DOXORUBICIN [Suspect]
     Active Substance: DOXORUBICIN
     Indication: ACUTE LYMPHOCYTIC LEUKAEMIA
     Dosage: REGIMEN #1; DAYS 1,8,15
     Route: 042
     Dates: start: 20170417
  14. METHOTREXATE. [Suspect]
     Active Substance: METHOTREXATE
     Indication: ACUTE LYMPHOCYTIC LEUKAEMIA
     Dosage: REGIMEN #1; DAY 29, D36
     Route: 037
     Dates: start: 20161111
  15. CYCLOPHOSPHAMIDE. [Suspect]
     Active Substance: CYCLOPHOSPHAMIDE
     Indication: ACUTE LYMPHOCYTIC LEUKAEMIA
     Dosage: RGIMEN #1; D29
     Route: 042
     Dates: start: 20161111
  16. OXYCODONE [Concomitant]
     Active Substance: OXYCODONE
     Dates: start: 20161105

REACTIONS (5)
  - Enterocolitis infectious [Recovered/Resolved]
  - Sepsis [Recovered/Resolved]
  - Impaired healing [Recovered/Resolved]
  - Peripheral sensory neuropathy [Recovered/Resolved]
  - Febrile neutropenia [Recovered/Resolved]

NARRATIVE: CASE EVENT DATE: 20170426
